FAERS Safety Report 15721964 (Version 14)
Quarter: 2020Q3

REPORT INFORMATION
  Report Type: Spontaneous
  Country: US (occurrence: US)
  Receive Date: 20181214
  Receipt Date: 20200722
  Transmission Date: 20201102
  Serious: No
  Sender: FDA-Public Use
  Company Number: US-PFIZER INC-2018511909

PATIENT
  Age: 87 Year
  Sex: Female
  Weight: 59 kg

DRUGS (3)
  1. IBRANCE [Suspect]
     Active Substance: PALBOCICLIB
     Dosage: 75 MG, UNK
  2. IBRANCE [Suspect]
     Active Substance: PALBOCICLIB
     Indication: BREAST CANCER FEMALE
     Dosage: 125 MG, UNK
  3. IBRANCE [Suspect]
     Active Substance: PALBOCICLIB
     Dosage: 100 MG, UNK

REACTIONS (18)
  - Abdominal pain upper [Recovered/Resolved]
  - Arthropod bite [Unknown]
  - Ear pain [Unknown]
  - Hair texture abnormal [Unknown]
  - Fatigue [Not Recovered/Not Resolved]
  - Weight increased [Unknown]
  - Parosmia [Unknown]
  - Feeling abnormal [Unknown]
  - Back pain [Unknown]
  - Pain in extremity [Unknown]
  - Dizziness [Unknown]
  - Nail discomfort [Unknown]
  - Impaired healing [Unknown]
  - Illness [Recovering/Resolving]
  - Bronchitis [Recovering/Resolving]
  - Psychiatric symptom [Unknown]
  - Asthenia [Unknown]
  - Skin lesion [Unknown]
